FAERS Safety Report 13582179 (Version 1)
Quarter: 2017Q2

REPORT INFORMATION
  Report Type: Spontaneous
  Country: CA (occurrence: CA)
  Receive Date: 20170525
  Receipt Date: 20170525
  Transmission Date: 20170830
  Serious: Yes (Other)
  Sender: FDA-Public Use
  Company Number: CA-BAYER-2017-095155

PATIENT
  Age: 7 Week
  Sex: Female

DRUGS (4)
  1. HEPARIN [Concomitant]
     Active Substance: HEPARIN SODIUM
     Dosage: 28 U/KG/H
  2. ACETYLSALICYLIC ACID({=100 MG) [Suspect]
     Active Substance: ASPIRIN
     Dosage: 5 MG/KG/D
  3. WARFARIN [Concomitant]
     Active Substance: WARFARIN
     Dosage: 0.12-0.5 MG/KG/D
  4. ACETYLSALICYLIC ACID({=100 MG) [Suspect]
     Active Substance: ASPIRIN
     Dosage: 3-5 MG/KG/D

REACTIONS (3)
  - Drug administered to patient of inappropriate age [None]
  - Cardiac valve replacement complication [None]
  - Drug ineffective [None]
